FAERS Safety Report 17186055 (Version 1)
Quarter: 2019Q4

REPORT INFORMATION
  Report Type: Spontaneous
  Country: FR (occurrence: FR)
  Receive Date: 20191220
  Receipt Date: 20191220
  Transmission Date: 20200122
  Serious: Yes (Other)
  Sender: FDA-Public Use
  Company Number: FR-009507513-1912FRA006892

PATIENT
  Weight: 1.05 kg

DRUGS (1)
  1. CELESTENE CHRONODOSE [Suspect]
     Active Substance: BETAMETHASONE
     Dosage: UNK
     Route: 064

REACTIONS (5)
  - Premature baby [Unknown]
  - Foetal growth restriction [Recovering/Resolving]
  - Foetal exposure during pregnancy [Recovered/Resolved]
  - Low birth weight baby [Recovering/Resolving]
  - Continuous positive airway pressure [Recovering/Resolving]

NARRATIVE: CASE EVENT DATE: 20190531
